FAERS Safety Report 5076802-8 (Version None)
Quarter: 2006Q3

REPORT INFORMATION
  Report Type: 
  Country: None (occurrence: None)
  Receive Date: 20060725
  Receipt Date: 20060505
  Transmission Date: 20061208
  Serious: No
  Sender: FDA-Public Use
  Company Number: 200613274BWH

PATIENT
  Sex: Male
  Weight: 83.0083 kg

DRUGS (2)
  1. NEXAVAR [Suspect]
     Indication: RENAL CELL CARCINOMA STAGE UNSPECIFIED
     Dosage: 800 MG, TOTAL DAILY, ORAL
     Route: 048
  2. NEXAVAR [Suspect]
     Dosage: 600 MG, TOTAL DAILY, ORAL
     Route: 048
     Dates: start: 20060419

REACTIONS (8)
  - ANOREXIA [None]
  - BLOOD PRESSURE INCREASED [None]
  - NAUSEA [None]
  - PAIN IN EXTREMITY [None]
  - PALMAR-PLANTAR ERYTHRODYSAESTHESIA SYNDROME [None]
  - PRURITUS [None]
  - SCAB [None]
  - WEIGHT DECREASED [None]
